FAERS Safety Report 8432959-X (Version None)
Quarter: 2012Q2

REPORT INFORMATION
  Report Type: 
  Country: None (occurrence: None)
  Receive Date: 20120323
  Receipt Date: 20110811
  Transmission Date: 20120825
  Serious: Yes (Life-Threatening, Hospitalization)
  Sender: FDA-Public Use
  Company Number: 163-21880-11071807

PATIENT
  Age: 80 Year
  Sex: Male

DRUGS (6)
  1. ASPIRIN [Concomitant]
  2. DEXAMETHASONE [Concomitant]
  3. LEVOTHYROXINE SODIUM [Concomitant]
  4. LORATADINE [Concomitant]
  5. REVLIMID [Suspect]
     Indication: MULTIPLE MYELOMA
     Dosage: 25 MG, X 21 DAYS, PO
     Route: 048
     Dates: start: 20100201, end: 20110705
  6. METFFORMIN HYDROCHLORIDE [Concomitant]

REACTIONS (3)
  - DEEP VEIN THROMBOSIS [None]
  - PHARYNGITIS [None]
  - PULMONARY EMBOLISM [None]
